FAERS Safety Report 22400093 (Version 1)
Quarter: 2023Q2

REPORT INFORMATION
  Report Type: Spontaneous
  Country: GB (occurrence: GB)
  Receive Date: 20230602
  Receipt Date: 20230602
  Transmission Date: 20230721
  Serious: Yes (Other)
  Sender: FDA-Public Use
  Company Number: GB-ANIPHARMA-2023-UK-000181

PATIENT
  Age: 63 Year
  Sex: Male
  Weight: 96 kg

DRUGS (4)
  1. CANDESARTAN CILEXETIL [Suspect]
     Active Substance: CANDESARTAN CILEXETIL
     Indication: Hypertension
     Dosage: 18-FEB-2021 TO UNKNOWN DATE; THEN 15-MAR-2023 TO UNKNOWN DATE
     Route: 048
     Dates: start: 20210218
  2. AMLODIPINE [Concomitant]
     Active Substance: AMLODIPINE BESYLATE
     Dosage: TAKE ONE TABLET IN THE MORNING TO REDUCE BLOOD PRESSURE. STOP CANDESARTAN
     Route: 065
     Dates: start: 20230329
  3. HYDROXOCOBALAMIN [Concomitant]
     Active Substance: HYDROXOCOBALAMIN
     Dosage: IM INJECTION EVERY 3MONTHS
     Route: 030
     Dates: start: 20221209
  4. LANSOPRAZOLE [Concomitant]
     Active Substance: LANSOPRAZOLE
     Dosage: TAKE ONE ONCE DAILY IN THE MORNING BEFORE BREAK...
     Route: 065
     Dates: start: 20230322

REACTIONS (3)
  - Dyspnoea [Unknown]
  - Arthralgia [Unknown]
  - Joint swelling [Unknown]
